FAERS Safety Report 6759430-5 (Version None)
Quarter: 2010Q2

REPORT INFORMATION
  Report Type: 
  Country: None (occurrence: None)
  Receive Date: 20100602
  Receipt Date: 20100518
  Transmission Date: 20101027
  Serious: Yes (Death, Hospitalization)
  Sender: FDA-Public Use
  Company Number: 2010001005

PATIENT
  Age: 72 Year
  Sex: Male
  Weight: 86.5 kg

DRUGS (8)
  1. ERLOTINIB (ERLOTINIB) (TABLET) (ERLOTINIB) [Suspect]
     Indication: PANCREATIC CARCINOMA
     Dosage: (150 MG,QD), ORAL
     Route: 048
     Dates: start: 20100217, end: 20100317
  2. SORAFENIB [Suspect]
     Indication: PANCREATIC CARCINOMA
     Dosage: (400 MG, BID), ORAL
     Route: 048
     Dates: start: 20100217, end: 20100317
  3. METFORMIN HCL [Concomitant]
  4. LISINOPRIL [Concomitant]
  5. GLMEPRIDE (GLIMEPRIDE) [Concomitant]
  6. PLAVIX [Concomitant]
  7. HYDROCODONE (HYDROCODONE) [Concomitant]
  8. PHENERGAN (PROMETHAZINE) [Concomitant]

REACTIONS (23)
  - ABDOMINAL PAIN [None]
  - ACUTE MYOCARDIAL INFARCTION [None]
  - BLOOD POTASSIUM INCREASED [None]
  - BLOOD SODIUM DECREASED [None]
  - BLOOD UREA INCREASED [None]
  - BLOOD URINE PRESENT [None]
  - CARDIAC FAILURE CONGESTIVE [None]
  - CONFUSIONAL STATE [None]
  - DEHYDRATION [None]
  - GASTROENTERITIS [None]
  - GASTROINTESTINAL HAEMORRHAGE [None]
  - GLUCOSE URINE PRESENT [None]
  - HYPOPHAGIA [None]
  - MALIGNANT NEOPLASM PROGRESSION [None]
  - MENTAL STATUS CHANGES [None]
  - METASTASES TO LIVER [None]
  - METASTASES TO LUNG [None]
  - OEDEMA [None]
  - PANCREATIC CARCINOMA [None]
  - PNEUMONIA [None]
  - PROTEIN URINE PRESENT [None]
  - THROMBOCYTOPENIA [None]
  - URINE KETONE BODY PRESENT [None]
